FAERS Safety Report 6010875-0 (Version None)
Quarter: 2008Q4

REPORT INFORMATION
  Report Type: 
  Country: None (occurrence: None)
  Receive Date: 20081218
  Receipt Date: 20081124
  Transmission Date: 20090506
  Serious: Yes (Other)
  Sender: FDA-Public Use
  Company Number: PHHY2008BR30467

PATIENT
  Sex: Female

DRUGS (1)
  1. METHERGINE [Suspect]
     Dosage: UNK
     Route: 048

REACTIONS (3)
  - ARRHYTHMIA [None]
  - CHEST PAIN [None]
  - VISION BLURRED [None]
